FAERS Safety Report 13590132 (Version 2)
Quarter: 2017Q2

REPORT INFORMATION
  Report Type: Spontaneous
  Country: MX (occurrence: MX)
  Receive Date: 20170530
  Receipt Date: 20170530
  Transmission Date: 20170830
  Serious: Yes (Hospitalization, Other)
  Sender: FDA-Public Use
  Company Number: MX-RECKITT BENCKISER HEALTHCARE INT LIMITED-RB-87006-2017

PATIENT
  Age: 77 Year
  Sex: Female
  Weight: 77 kg

DRUGS (1)
  1. TEMPRA [Suspect]
     Active Substance: ACETAMINOPHEN
     Indication: PRODUCT USED FOR UNKNOWN INDICATION
     Dosage: EACH 8 HOUR
     Route: 042
     Dates: start: 20170116, end: 2017

REACTIONS (6)
  - Injection site erythema [None]
  - Injection site discomfort [None]
  - Swelling [Unknown]
  - Limb discomfort [Unknown]
  - Erythema [Unknown]
  - Injection site swelling [None]

NARRATIVE: CASE EVENT DATE: 20170116
